FAERS Safety Report 13381068 (Version 1)
Quarter: 2017Q1

REPORT INFORMATION
  Report Type: Spontaneous
  Country: US (occurrence: US)
  Receive Date: 20170329
  Receipt Date: 20170329
  Transmission Date: 20170429
  Serious: No
  Sender: FDA-Public Use
  Company Number: US-PFIZER INC-2017129405

PATIENT
  Sex: Female
  Weight: 60 kg

DRUGS (1)
  1. METRONIDAZOLE. [Suspect]
     Active Substance: METRONIDAZOLE
     Indication: BACTERIAL INFECTION
     Dosage: APPLICATOR FULL EVERY NIGHT

REACTIONS (1)
  - Drug ineffective [Unknown]
